FAERS Safety Report 14759314 (Version 1)
Quarter: 2018Q2

REPORT INFORMATION
  Report Type: Spontaneous
  Country: US (occurrence: US)
  Receive Date: 20180413
  Receipt Date: 20180413
  Transmission Date: 20180711
  Serious: No
  Sender: FDA-Public Use
  Company Number: US-ASTRAZENECA-2018SE33955

PATIENT

DRUGS (4)
  1. METFORMIN [Suspect]
     Active Substance: METFORMIN HYDROCHLORIDE
     Dosage: NON AZ
     Route: 065
  2. FARXIGA [Suspect]
     Active Substance: DAPAGLIFLOZIN PROPANEDIOL
     Route: 048
  3. GLIPIZIDE. [Concomitant]
     Active Substance: GLIPIZIDE
  4. BYDUREON BCISE [Suspect]
     Active Substance: EXENATIDE
     Dosage: 2.0MG UNKNOWN
     Route: 065

REACTIONS (16)
  - Malaise [Unknown]
  - Vomiting [Unknown]
  - Hypophagia [Unknown]
  - Nausea [Unknown]
  - Retching [Unknown]
  - Sneezing [Unknown]
  - Feeling abnormal [Unknown]
  - Dehydration [Unknown]
  - Blood creatinine increased [Unknown]
  - Glycosylated haemoglobin increased [Unknown]
  - Nephropathy [Unknown]
  - Polyuria [Unknown]
  - Decreased appetite [Unknown]
  - Rhinorrhoea [Unknown]
  - Renal impairment [Unknown]
  - Pollakiuria [Unknown]
